FAERS Safety Report 7251006-9 (Version None)
Quarter: 2011Q1

REPORT INFORMATION
  Report Type: 
  Country: None (occurrence: None)
  Receive Date: 20110128
  Receipt Date: 20110124
  Transmission Date: 20110831
  Serious: Yes (Other)
  Sender: FDA-Public Use
  Company Number: B0696216A

PATIENT
  Sex: Male

DRUGS (3)
  1. AVOLVE [Suspect]
     Dosage: .5MG PER DAY
     Route: 048
     Dates: start: 20110112, end: 20110122
  2. HARNAL D [Concomitant]
     Route: 048
  3. AVOLVE [Suspect]
     Indication: BENIGN PROSTATIC HYPERPLASIA
     Route: 048
     Dates: start: 20100309

REACTIONS (3)
  - MUSCULOSKELETAL STIFFNESS [None]
  - LOSS OF CONSCIOUSNESS [None]
  - SOMNOLENCE [None]
